FAERS Safety Report 5304157-X (Version None)
Quarter: 2007Q2

REPORT INFORMATION
  Report Type: 
  Country: None (occurrence: None)
  Receive Date: 20070423
  Receipt Date: 20070411
  Transmission Date: 20071010
  Serious: Yes (Other)
  Sender: FDA-Public Use
  Company Number: PHEH2007US05022

PATIENT
  Age: 85 Year
  Sex: Female

DRUGS (11)
  1. ZELNORM [Suspect]
     Indication: CONSTIPATION
     Dosage: 6 MG, BID
     Route: 048
     Dates: start: 20060401, end: 20070418
  2. ASPIRIN [Concomitant]
     Dosage: 81 MG, UNK
  3. LASIX [Concomitant]
     Dosage: 40 MG, TID
  4. IMDUR [Concomitant]
     Dosage: 30 MG, QD
  5. PLAVIX [Concomitant]
     Dosage: 75 MG, QD
  6. LEVOTHYROXINE SODIUM [Concomitant]
     Dosage: 0.05 MG, QD
  7. NEXIUM [Concomitant]
     Dosage: 40 MG, QD
  8. POTASSIUM ACETATE [Concomitant]
  9. TOPROL-XL [Concomitant]
     Dosage: 25 MG, QW2
  10. ALLOPURINOL [Concomitant]
     Dosage: 100 MG, QHS
  11. MELATONIN [Concomitant]
     Dosage: UNK, BIW

REACTIONS (1)
  - CARDIAC FAILURE CONGESTIVE [None]
